FAERS Safety Report 23442412 (Version 1)
Quarter: 2024Q1

REPORT INFORMATION
  Report Type: Spontaneous
  Country: US (occurrence: None)
  Receive Date: 20240124
  Receipt Date: 20240124
  Transmission Date: 20240410
  Serious: Yes (Hospitalization)
  Sender: FDA-Public Use
  Company Number: None

PATIENT
  Age: 69 Year
  Sex: Male

DRUGS (1)
  1. EVEROLIMUS [Suspect]
     Active Substance: EVEROLIMUS
     Dosage: FREQUENCY : DAILY;?

REACTIONS (8)
  - Disease progression [None]
  - Decreased appetite [None]
  - Ageusia [None]
  - Weight decreased [None]
  - Dehydration [None]
  - Diarrhoea [None]
  - Epistaxis [None]
  - Arthralgia [None]
